FAERS Safety Report 19582106 (Version 1)
Quarter: 2021Q3

REPORT INFORMATION
  Report Type: Spontaneous
  Country: US (occurrence: US)
  Receive Date: 20210719
  Receipt Date: 20210719
  Transmission Date: 20211014
  Serious: No
  Sender: FDA-Public Use
  Company Number: US-GALDERMA-US2021012556

PATIENT

DRUGS (6)
  1. PROACTIV MD ADAPALENE ACNE TREATMENT [Suspect]
     Active Substance: ADAPALENE
     Indication: ACNE
     Dosage: UNKNOWN
     Route: 061
     Dates: start: 20191217, end: 202001
  2. PROACTIV GREEN TEA MOISTURIZER [Concomitant]
     Active Substance: COSMETICS
     Indication: ACNE
     Dosage: 2 OR MORE TIMES A DAY
     Route: 061
     Dates: start: 20191217, end: 202001
  3. PROACTIV MD DEEP CLEANSING FACE WASH [Concomitant]
     Active Substance: COSMETICS
     Indication: ACNE
     Dosage: 2 OR MORE TIMES A DAY
     Route: 061
     Dates: start: 20191217, end: 202001
  4. PROACTIV DEEP CLEANSING WASH [Concomitant]
     Active Substance: SALICYLIC ACID
     Indication: ACNE
     Dosage: 2 OR MORE TIMES A DAY
     Route: 061
     Dates: start: 20191217, end: 202001
  5. PROACTIV MD DAILY OIL CONTROL SPF 30 [Suspect]
     Active Substance: AVOBENZONE\OCTISALATE\OCTOCRYLENE
     Indication: ACNE
     Dosage: 2 OR MORE TIMES A DAY
     Route: 061
     Dates: start: 20191217, end: 202001
  6. PROACTIV REDNESS RELIEF SERUM [Concomitant]
     Indication: ACNE
     Dosage: 2 OR MORE TIMES A DAY
     Route: 061
     Dates: start: 20191217, end: 202001

REACTIONS (2)
  - Skin exfoliation [Recovered/Resolved]
  - Dry skin [Recovered/Resolved]

NARRATIVE: CASE EVENT DATE: 20191224
